FAERS Safety Report 6661716-X (Version None)
Quarter: 2010Q1

REPORT INFORMATION
  Report Type: 
  Country: None (occurrence: None)
  Receive Date: 20100331
  Receipt Date: 20090427
  Transmission Date: 20100710
  Serious: No
  Sender: FDA-Public Use
  Company Number: US-BRISTOL-MYERS SQUIBB COMPANY-14611693

PATIENT

DRUGS (1)
  1. ERBITUX [Suspect]

REACTIONS (1)
  - ALVEOLITIS ALLERGIC [None]
